FAERS Safety Report 18993199 (Version 1)
Quarter: 2021Q1

REPORT INFORMATION
  Report Type: Spontaneous
  Country: RU (occurrence: RU)
  Receive Date: 20210310
  Receipt Date: 20210310
  Transmission Date: 20210420
  Serious: Yes (Other)
  Sender: FDA-Public Use
  Company Number: RU-ENDO PHARMACEUTICALS INC-2021-001552

PATIENT

DRUGS (1)
  1. MELPHALAN HYDROCHLORIDE. [Suspect]
     Active Substance: MELPHALAN HYDROCHLORIDE
     Indication: NEPHROBLASTOMA
     Dosage: 200 MG/M2, UNKNOWN
     Route: 065

REACTIONS (2)
  - Off label use [Unknown]
  - Haematotoxicity [Unknown]
